FAERS Safety Report 4953285-7 (Version None)
Quarter: 2006Q1

REPORT INFORMATION
  Report Type: 
  Country: None (occurrence: None)
  Receive Date: 20060324
  Receipt Date: 20060217
  Transmission Date: 20060701
  Serious: Yes (Hospitalization)
  Sender: FDA-Public Use
  Company Number: IT-BRISTOL-MYERS SQUIBB COMPANY-13296017

PATIENT
  Age: 48 Year
  Sex: Female

DRUGS (4)
  1. CETUXIMAB [Suspect]
     Indication: GASTRIC CANCER
     Route: 041
     Dates: start: 20051230, end: 20060213
  2. IRINOTECAN [Suspect]
     Indication: GASTRIC CANCER
     Route: 042
     Dates: start: 20051230
  3. FOLINIC ACID [Suspect]
     Indication: GASTRIC CANCER
     Route: 042
     Dates: start: 20051230
  4. FLUOROURACIL [Suspect]
     Indication: GASTRIC CANCER
     Route: 042
     Dates: start: 20051230

REACTIONS (3)
  - CONJUNCTIVITIS [None]
  - FACE OEDEMA [None]
  - MUCOSAL INFLAMMATION [None]
